FAERS Safety Report 4717540-8 (Version None)
Quarter: 2005Q3

REPORT INFORMATION
  Report Type: 
  Country: None (occurrence: None)
  Receive Date: 20050715
  Receipt Date: 20050630
  Transmission Date: 20060218
  Serious: Yes (Other)
  Sender: FDA-Public Use
  Company Number: PHEH2005US07374

PATIENT
  Age: 77 Year
  Sex: Male

DRUGS (2)
  1. VISUDYNE [Suspect]
     Dates: start: 20030101, end: 20030101
  2. VISUDYNE [Suspect]
     Dates: start: 20050629, end: 20050629

REACTIONS (3)
  - BLINDNESS UNILATERAL [None]
  - SCOTOMA [None]
  - VISUAL DISTURBANCE [None]
